FAERS Safety Report 4319197-7 (Version None)
Quarter: 2004Q1

REPORT INFORMATION
  Report Type: 
  Country: None (occurrence: None)
  Receive Date: 20040315
  Receipt Date: 20031222
  Transmission Date: 20041129
  Serious: Yes (Hospitalization)
  Sender: FDA-Public Use
  Company Number: 2003191710US

PATIENT
  Age: 53 Year
  Sex: Male

DRUGS (2)
  1. BEXTRA [Suspect]
     Indication: ARTHRITIS
     Dosage: 20 MG,
     Dates: start: 20030901, end: 20031101
  2. NEXIUM [Concomitant]

REACTIONS (1)
  - GASTRIC HAEMORRHAGE [None]
